FAERS Safety Report 8261351-6 (Version None)
Quarter: 2012Q2

REPORT INFORMATION
  Report Type: 
  Country: None (occurrence: None)
  Receive Date: 20120405
  Receipt Date: 20120330
  Transmission Date: 20120825
  Serious: Yes (Hospitalization, Other)
  Sender: FDA-Public Use
  Company Number: US-PFIZER INC-2012026353

PATIENT
  Sex: Female

DRUGS (4)
  1. VISTARIL [Suspect]
     Dosage: UNK
  2. NEURONTIN [Suspect]
     Dosage: UNK
  3. CELEBREX [Suspect]
     Dosage: UNK, 1X/DAY
     Route: 048
     Dates: end: 20110519
  4. CADUET [Suspect]
     Dosage: UNK

REACTIONS (6)
  - PNEUMONIA [None]
  - BLOOD CREATININE INCREASED [None]
  - HYPOACUSIS [None]
  - DRUG INTOLERANCE [None]
  - RENAL FAILURE [None]
  - ARTHRITIS [None]
